FAERS Safety Report 16777692 (Version 1)
Quarter: 2019Q3

REPORT INFORMATION
  Report Type: Spontaneous
  Country: CA (occurrence: CA)
  Receive Date: 20190905
  Receipt Date: 20190905
  Transmission Date: 20191005
  Serious: Yes (Other)
  Sender: FDA-Public Use
  Company Number: CA-GLAXOSMITHKLINE-CA2019AMR158105

PATIENT
  Sex: Female

DRUGS (18)
  1. ZOPICLONE [Suspect]
     Active Substance: ZOPICLONE
     Indication: INSOMNIA
     Dosage: 1 EVERY 24 HOURS
  2. ESTRADIOL. [Suspect]
     Active Substance: ESTRADIOL
     Route: 067
  3. LEVOTHYROXINE SODIUM. [Suspect]
     Active Substance: LEVOTHYROXINE SODIUM
  4. RANITIDINE. [Suspect]
     Active Substance: RANITIDINE
     Dosage: 2 EVERY 1 DAY
  5. PREMARIN [Suspect]
     Active Substance: ESTROGENS, CONJUGATED
     Dosage: UNK
     Route: 061
  6. ACETAMINOPHEN. [Suspect]
     Active Substance: ACETAMINOPHEN
     Indication: PAIN
  7. ALMAGEL [ALUMINUM HYDROXIDE\MAGNESIUM HYDROXIDE\SIMETHICONE] [Suspect]
     Active Substance: ALUMINUM HYDROXIDE\DIMETHICONE\MAGNESIUM HYDROXIDE
     Dosage: UNK
     Route: 048
  8. BREXPIPRAZOLE [Suspect]
     Active Substance: BREXPIPRAZOLE
  9. FLUVIRAL [Suspect]
     Active Substance: INFLUENZA VIRUS VACCINE
     Indication: PROPHYLAXIS
  10. ACETAMINOPHEN. [Suspect]
     Active Substance: ACETAMINOPHEN
     Indication: PYREXIA
  11. CLOZAPINE. [Suspect]
     Active Substance: CLOZAPINE
     Dosage: 1 EVERY 24 HOURS
  12. DEPAKOTE [Suspect]
     Active Substance: DIVALPROEX SODIUM
  13. CLOTRIMAZOLE. [Suspect]
     Active Substance: CLOTRIMAZOLE
  14. VITAMIN D3 [Suspect]
     Active Substance: CHOLECALCIFEROL
  15. AMLODIPINE BESILATE [Suspect]
     Active Substance: AMLODIPINE BESYLATE
     Dosage: 1 EVERY 24 HOURS
  16. ARIPIPRAZOLE. [Suspect]
     Active Substance: ARIPIPRAZOLE
  17. OLANZAPINE. [Suspect]
     Active Substance: OLANZAPINE
     Indication: MOOD ALTERED
  18. CLOZAPINE. [Suspect]
     Active Substance: CLOZAPINE
     Dosage: 1 EVERRY DAY

REACTIONS (5)
  - Sinus rhythm [Unknown]
  - Electrocardiogram QT prolonged [Unknown]
  - Schizoaffective disorder [Unknown]
  - Drug interaction [Unknown]
  - Drug level increased [Unknown]
